FAERS Safety Report 20590188 (Version 1)
Quarter: 2022Q1

REPORT INFORMATION
  Report Type: Spontaneous
  Country: US (occurrence: None)
  Receive Date: 20220312
  Receipt Date: 20220312
  Transmission Date: 20220424
  Serious: Yes (Disabling)
  Sender: FDA-Public Use
  Company Number: None

PATIENT
  Age: 30 Year
  Sex: Male
  Weight: 99 kg

DRUGS (9)
  1. REMICADE [Suspect]
     Active Substance: INFLIXIMAB
     Indication: Crohn^s disease
     Dates: start: 20210811, end: 20220310
  2. OMEPRAZOLE [Concomitant]
     Active Substance: OMEPRAZOLE
  3. VITAMINS [Concomitant]
     Active Substance: VITAMINS
  4. FISH OIL [Concomitant]
     Active Substance: FISH OIL
  5. FIBER [Concomitant]
     Active Substance: PSYLLIUM HUSK
  6. IRON [Concomitant]
  7. PROBIOTICS NOS [Concomitant]
     Active Substance: PROBIOTICS NOS
  8. VITAMIN D [Concomitant]
     Active Substance: VITAMIN D NOS
  9. CALCIUM [Concomitant]
     Active Substance: CALCIUM

REACTIONS (4)
  - Blood test abnormal [None]
  - Hypoaesthesia [None]
  - Carpal tunnel syndrome [None]
  - Blood iron decreased [None]

NARRATIVE: CASE EVENT DATE: 20220311
